FAERS Safety Report 12834009 (Version 4)
Quarter: 2020Q3

REPORT INFORMATION
  Report Type: Report from Study
  Country: IT (occurrence: IT)
  Receive Date: 20161010
  Receipt Date: 20180102
  Transmission Date: 20201104
  Serious: Yes (Death)
  Sender: FDA-Public Use
  Company Number: IT-JNJFOC-20161004235

PATIENT
  Age: 73 Year
  Sex: Female
  Weight: 40 kg

DRUGS (11)
  1. IBRUTINIB [Suspect]
     Active Substance: IBRUTINIB
  2. TORADOL [Concomitant]
     Active Substance: KETOROLAC TROMETHAMINE
     Indication: PAIN
     Route: 042
     Dates: start: 20160819, end: 20161002
  3. MOVICOL [Concomitant]
     Active Substance: POLYETHYLENE GLYCOL 3350\POTASSIUM CHLORIDE\SODIUM BICARBONATE\SODIUM CHLORIDE
     Indication: CONSTIPATION
     Route: 048
     Dates: start: 201608, end: 20161002
  4. IBRUTINIB [Suspect]
     Active Substance: IBRUTINIB
     Indication: PANCREATIC CARCINOMA METASTATIC
     Dates: start: 20160915, end: 20161002
  5. GEMCITABINE. [Suspect]
     Active Substance: GEMCITABINE
     Indication: PANCREATIC CARCINOMA METASTATIC
     Dosage: 1380 MG/M2, C1 D15
     Route: 042
     Dates: start: 20160915, end: 20160929
  6. OXYCONTIN [Concomitant]
     Active Substance: OXYCODONE HYDROCHLORIDE
     Indication: PAIN
     Route: 048
     Dates: start: 20160917, end: 20161002
  7. SOLDESAM [Concomitant]
     Active Substance: DEXAMETHASONE
     Indication: PAIN
     Route: 042
     Dates: start: 20160917, end: 20161002
  8. BISOPROLOL [Concomitant]
     Active Substance: BISOPROLOL
     Indication: HYPERTENSION
     Route: 048
     Dates: start: 201603, end: 20161002
  9. OMEPRAZOLE. [Concomitant]
     Active Substance: OMEPRAZOLE
     Indication: PROPHYLAXIS
     Route: 048
     Dates: start: 201603, end: 20161002
  10. CREON [Concomitant]
     Active Substance: PANCRELIPASE AMYLASE\PANCRELIPASE LIPASE\PANCRELIPASE PROTEASE
     Indication: PANCREATIC DISORDER
     Dosage: 1000 IU, 2 TABS QD
     Route: 048
     Dates: start: 20160819, end: 20161002
  11. NAB?PACLITAXEL [Suspect]
     Active Substance: PACLITAXEL
     Indication: PANCREATIC CARCINOMA METASTATIC
     Dosage: 172.50 MG/M2, C1 D15
     Route: 042
     Dates: start: 20160915, end: 20160929

REACTIONS (1)
  - Haemorrhage intracranial [Fatal]

NARRATIVE: CASE EVENT DATE: 20161003
